FAERS Safety Report 9779323 (Version 2)
Quarter: 2013Q4

REPORT INFORMATION
  Report Type: Spontaneous
  Country: GB (occurrence: GB)
  Receive Date: 20131223
  Receipt Date: 20131223
  Transmission Date: 20140711
  Serious: Yes (Death)
  Sender: FDA-Public Use
  Company Number: GB-BAXTER-2013BAX049342

PATIENT
  Sex: Male

DRUGS (4)
  1. DIANEAL PD4 GLUCOSE 1.36% W/V / 13.6 MG/ML [Suspect]
     Indication: PERITONEAL DIALYSIS
     Route: 033
     Dates: start: 20130212, end: 20131206
  2. DIANEAL PD4 GLUCOSE 2.27% W/V / 22.7 MG/ML [Suspect]
     Indication: PERITONEAL DIALYSIS
     Route: 033
     Dates: start: 20130212, end: 20131206
  3. EXTRANEAL (ICODEXTRIN 7.5%) SOLUTION FOR PERITONEAL DIALYSIS [Suspect]
     Indication: PERITONEAL DIALYSIS
     Route: 033
     Dates: start: 20130212, end: 20131206
  4. NUTRINEAL PD4 WITH 1.1% AMINO ACIDS [Suspect]
     Indication: PERITONEAL DIALYSIS
     Route: 033
     Dates: start: 20130212, end: 20131206

REACTIONS (1)
  - Myocardial infarction [Fatal]
